FAERS Safety Report 14614720 (Version 2)
Quarter: 2018Q1

REPORT INFORMATION
  Report Type: Spontaneous
  Country: FR (occurrence: FR)
  Receive Date: 20180308
  Receipt Date: 20180319
  Transmission Date: 20180509
  Serious: Yes (Other)
  Sender: FDA-Public Use
  Company Number: FR-TEVA-2018-FR-865946

PATIENT
  Sex: Female

DRUGS (1)
  1. VERAPAMIL [Suspect]
     Active Substance: VERAPAMIL HYDROCHLORIDE
     Route: 065

REACTIONS (6)
  - Gingival bleeding [Recovered/Resolved with Sequelae]
  - Gingivitis [Recovered/Resolved with Sequelae]
  - Gingival recession [Recovered/Resolved with Sequelae]
  - Periodontitis [Recovered/Resolved with Sequelae]
  - Feeding disorder [Unknown]
  - Pain [Unknown]
